FAERS Safety Report 9834108 (Version 1)
Quarter: 2014Q1

REPORT INFORMATION
  Report Type: Report from Study
  Country: US (occurrence: US)
  Receive Date: 20140122
  Receipt Date: 20140122
  Transmission Date: 20141002
  Serious: Yes (Other)
  Sender: FDA-Public Use
  Company Number: US-ROCHE-1335698

PATIENT
  Age: 8 Year
  Sex: Male
  Weight: 20.7 kg

DRUGS (4)
  1. NUTROPIN AQ [Suspect]
     Indication: GROWTH HORMONE DEFICIENCY
     Dosage: EVERY EVENING, EVERY NIGHT
     Route: 058
  2. CONCERTA [Concomitant]
     Route: 048
  3. TENEX [Concomitant]
     Route: 048
  4. LACTULOSE [Concomitant]
     Route: 048

REACTIONS (1)
  - Headache [Unknown]
